FAERS Safety Report 7241267-4 (Version None)
Quarter: 2011Q1

REPORT INFORMATION
  Report Type: 
  Country: None (occurrence: None)
  Receive Date: 20110124
  Receipt Date: 20110118
  Transmission Date: 20110831
  Serious: Yes (Hospitalization)
  Sender: FDA-Public Use
  Company Number: A0906923A

PATIENT
  Age: 49 Year
  Sex: Female

DRUGS (29)
  1. TOPAMAX [Concomitant]
  2. VERAPAMIL EXTENDED-RELEASE [Concomitant]
  3. PHENERGAN [Concomitant]
  4. ANTIVERT [Concomitant]
  5. AMITRIPTYLINE [Concomitant]
  6. ABILIFY [Concomitant]
  7. NEURONTIN [Concomitant]
  8. UNSPECIFIED MEDICATION [Concomitant]
  9. VITAMIN E [Concomitant]
  10. VITAMIN D [Concomitant]
  11. VITAMIN B-12 [Concomitant]
  12. IMITREX [Suspect]
     Indication: MIGRAINE
     Dosage: 6MG AS REQUIRED
     Route: 058
     Dates: start: 20060101
  13. REQUIP XL [Suspect]
     Dosage: 2MG PER DAY
     Route: 048
     Dates: start: 20090101
  14. MORPHINE SULFATE [Concomitant]
  15. VISTARIL [Concomitant]
  16. XANAX [Concomitant]
  17. TRAZODONE HCL [Concomitant]
  18. PREMARIN [Concomitant]
  19. HYDROCHLOROTHIAZIDE [Concomitant]
  20. AMITIZA [Concomitant]
  21. VALTREX [Suspect]
     Dosage: 1G PER DAY
     Route: 048
     Dates: start: 20080101
  22. IRON SUPPLEMENT [Concomitant]
  23. SYNTHROID [Concomitant]
  24. STOOL SOFTENER [Concomitant]
  25. ZANAFLEX [Concomitant]
  26. ROCALTROL [Concomitant]
  27. EFFEXOR XR [Concomitant]
  28. ZOLOFT [Concomitant]
  29. KLOR-CON [Concomitant]

REACTIONS (1)
  - PNEUMONIA [None]
